FAERS Safety Report 8504156-0 (Version None)
Quarter: 2012Q3

REPORT INFORMATION
  Report Type: 
  Country: None (occurrence: None)
  Receive Date: 20120711
  Receipt Date: 20120702
  Transmission Date: 20120928
  Serious: No
  Sender: FDA-Public Use
  Company Number: US-009507513-1207USA00137

PATIENT

DRUGS (6)
  1. TYLENOL W/ CODEINE [Concomitant]
     Dosage: 300/30
  2. LYRICA [Suspect]
     Indication: FIBROMYALGIA
     Dosage: 300 MG, BID
     Route: 048
     Dates: start: 20080101
  3. TRAZODONE HYDROCHLORIDE [Concomitant]
     Dosage: 200 MG, QD
  4. DECADRON [Suspect]
     Indication: INFLAMMATION
     Dosage: UNK
     Route: 048
     Dates: start: 20120620
  5. VITAMINS (UNSPECIFIED) [Concomitant]
     Dosage: UNK UNK, QD
  6. DECADRON [Suspect]
     Indication: INFLAMMATION
     Dosage: UNK UNK, ONCE
     Dates: start: 20120620, end: 20120620

REACTIONS (2)
  - ADVERSE EVENT [None]
  - FEELING ABNORMAL [None]
